FAERS Safety Report 18990917 (Version 7)
Quarter: 2021Q3

REPORT INFORMATION
  Report Type: Report from Study
  Country: BF (occurrence: BF)
  Receive Date: 20210310
  Receipt Date: 20210814
  Transmission Date: 20211014
  Serious: Yes (Other)
  Sender: FDA-Public Use
  Company Number: NVSC2021BF041484

PATIENT
  Age: 2 Year
  Sex: Female

DRUGS (2)
  1. COARTEM [Suspect]
     Active Substance: ARTEMETHER\LUMEFANTRINE
     Indication: PLASMODIUM FALCIPARUM INFECTION
     Dosage: 20/120 MG, BID
     Route: 048
     Dates: start: 20210122
  2. LITACOLD [Concomitant]
     Indication: RHINITIS
     Dosage: 10 ML, TID
     Route: 048
     Dates: start: 20210213, end: 20210217

REACTIONS (1)
  - Blood alkaline phosphatase increased [Not Recovered/Not Resolved]

NARRATIVE: CASE EVENT DATE: 20210219
